FAERS Safety Report 8222336-9 (Version None)
Quarter: 2012Q1

REPORT INFORMATION
  Report Type: 
  Country: None (occurrence: None)
  Receive Date: 20120320
  Receipt Date: 20120312
  Transmission Date: 20120608
  Serious: Yes (Hospitalization)
  Sender: FDA-Public Use
  Company Number: US-BAYER-201017772NA

PATIENT
  Age: 20 Year
  Sex: Female
  Weight: 79.545 kg

DRUGS (3)
  1. VICODIN [Concomitant]
     Indication: NON-CARDIAC CHEST PAIN
     Dosage: 15 TABLETS 1-2 TABLETS BY MOUTH EVERY 4-6 HOURS AS NEEDED FOR PAIN
     Route: 048
     Dates: start: 20091001
  2. YAZ [Suspect]
     Indication: CONTRACEPTION
     Dosage: AS USED DOSE: UNK
     Route: 048
     Dates: start: 20080219, end: 20091025
  3. TYLENOL [Concomitant]
     Indication: MUSCULOSKELETAL PAIN
     Dates: start: 20091024

REACTIONS (6)
  - PULMONARY EMBOLISM [None]
  - CHEST PAIN [None]
  - DYSPNOEA [None]
  - ANXIETY [None]
  - SINUS TACHYCARDIA [None]
  - AMENORRHOEA [None]
